FAERS Safety Report 24971641 (Version 1)
Quarter: 2025Q1

REPORT INFORMATION
  Report Type: Spontaneous
  Country: US (occurrence: None)
  Receive Date: 20250214
  Receipt Date: 20250214
  Transmission Date: 20250409
  Serious: Yes (Hospitalization)
  Sender: FDA-CTU
  Company Number: None

PATIENT
  Age: 76 Year
  Sex: Female

DRUGS (1)
  1. TYMLOS [Suspect]
     Active Substance: ABALOPARATIDE
     Dosage: FREQUENCY : DAILY;?
     Route: 058
     Dates: start: 20250122, end: 20250131

REACTIONS (3)
  - Syncope [None]
  - Atrial fibrillation [None]
  - Tachycardia [None]

NARRATIVE: CASE EVENT DATE: 20250131
